FAERS Safety Report 12295034 (Version 1)
Quarter: 2016Q2

REPORT INFORMATION
  Report Type: Spontaneous
  Country: US (occurrence: None)
  Receive Date: 20160421
  Receipt Date: 20160421
  Transmission Date: 20160815
  Serious: Yes (Other)
  Sender: FDA-Public Use
  Company Number: None

PATIENT
  Age: 57 Year
  Sex: Female
  Weight: 68.95 kg

DRUGS (7)
  1. IDEBENONE [Concomitant]
     Active Substance: IDEBENONE
  2. VITAMIN B12 [Concomitant]
     Active Substance: CYANOCOBALAMIN
  3. METFORMIN [Concomitant]
     Active Substance: METFORMIN HYDROCHLORIDE
  4. VITAMIN D [Concomitant]
     Active Substance: CHOLECALCIFEROL
  5. BYDUREON [Suspect]
     Active Substance: EXENATIDE
     Indication: DIABETES MELLITUS
     Route: 058
  6. ARGININE [Concomitant]
     Active Substance: ARGININE
  7. UBIQUINONE [Concomitant]
     Active Substance: UBIDECARENONE

REACTIONS (3)
  - Anxiety [None]
  - Mass [None]
  - Pruritus [None]

NARRATIVE: CASE EVENT DATE: 20160419
